FAERS Safety Report 15692286 (Version 1)
Quarter: 2018Q4

REPORT INFORMATION
  Report Type: Spontaneous
  Country: BR (occurrence: BR)
  Receive Date: 20181205
  Receipt Date: 20181205
  Transmission Date: 20190205
  Serious: Yes (Other)
  Sender: FDA-Public Use
  Company Number: BR-BAXTER-2018BAX029311

PATIENT
  Sex: Female

DRUGS (2)
  1. BUPICAN HEAVY [Suspect]
     Active Substance: BUPIVACAINE HYDROCHLORIDE
     Indication: ANAESTHESIA PROCEDURE
     Route: 037
  2. BUPICAN HEAVY [Suspect]
     Active Substance: BUPIVACAINE HYDROCHLORIDE
     Dosage: DOSE RE-INTRODUCED; USING NEW MATERIALS AND USING THE SURGERY ROOM FOR A LONGER TIME
     Route: 037

REACTIONS (2)
  - Drug effect incomplete [Unknown]
  - Exposure during pregnancy [Unknown]
